FAERS Safety Report 10507156 (Version 1)
Quarter: 2014Q3

REPORT INFORMATION
  Report Type: Spontaneous
  Country: US (occurrence: None)
  Receive Date: 20140915
  Receipt Date: 20140915
  Transmission Date: 20150326
  Serious: Yes (Other)
  Sender: FDA-Public Use
  Company Number: 2014-US-006710

PATIENT
  Age: 52 Year
  Sex: Female
  Weight: 106.6 kg

DRUGS (9)
  1. SYNTHROID [Concomitant]
     Active Substance: LEVOTHYROXINE SODIUM
  2. DITROPAN (OXYBUTYNIN HYDROCHLORIDE) [Concomitant]
  3. ABILIFY (ARIPRAZOLE) [Concomitant]
  4. LIPITOR [Concomitant]
     Active Substance: ATORVASTATIN CALCIUM
  5. XYREM [Suspect]
     Active Substance: SODIUM OXYBATE
     Indication: NARCOLEPSY
     Route: 048
     Dates: start: 20140523, end: 2014
  6. CORGARD (NADOLOL) [Concomitant]
  7. ASPIRIN (ACETYLSALICYLIC ACID) [Concomitant]
     Active Substance: ASPIRIN
  8. CYMBALTA [Concomitant]
     Active Substance: DULOXETINE HYDROCHLORIDE
  9. LOSARTAN (LOSARTAN POTASSIUM) [Concomitant]

REACTIONS (6)
  - Feeling abnormal [None]
  - Muscular weakness [None]
  - Irritability [None]
  - Paraesthesia [None]
  - Muscle spasms [None]
  - Feeling of despair [None]

NARRATIVE: CASE EVENT DATE: 201405
